FAERS Safety Report 10751648 (Version 1)
Quarter: 2015Q1

REPORT INFORMATION
  Report Type: Spontaneous
  Country: DE (occurrence: None)
  Receive Date: 20150128
  Receipt Date: 20150128
  Transmission Date: 20150721
  Serious: Yes (Life-Threatening, Hospitalization)
  Sender: FDA-Public Use
  Company Number: DE-LHC-2015008

PATIENT
  Sex: Male

DRUGS (1)
  1. CONOXIA (OXYGEN) (GAS FOR INHALATION) (VERUM) [Suspect]
     Active Substance: OXYGEN
     Route: 055

REACTIONS (2)
  - Thermal burn [None]
  - Wrong technique in drug usage process [None]
